FAERS Safety Report 24666090 (Version 1)
Quarter: 2024Q4

REPORT INFORMATION
  Report Type: Spontaneous
  Country: US (occurrence: US)
  Receive Date: 20241126
  Receipt Date: 20241126
  Transmission Date: 20250115
  Serious: No
  Sender: UROGEN PHARMA
  Company Number: US-UROGEN PHARMA LTD.-2024-UGN-000151

PATIENT

DRUGS (6)
  1. JELMYTO [Suspect]
     Active Substance: MITOMYCIN
     Indication: Product used for unknown indication
     Dosage: UNK,(INSTILLATION),RETROGRADE
     Route: 065
     Dates: start: 20240606, end: 20240606
  2. JELMYTO [Suspect]
     Active Substance: MITOMYCIN
     Dosage: UNK,(INSTILLATION), ANTEGRADE
     Route: 065
     Dates: start: 20240628, end: 20240628
  3. JELMYTO [Suspect]
     Active Substance: MITOMYCIN
     Dosage: UNK, (INSTILLATION),ANTEGRADE
     Route: 065
     Dates: start: 20240719, end: 20240719
  4. JELMYTO [Suspect]
     Active Substance: MITOMYCIN
     Dosage: UNK, (INSTILLATION), ANTEGRADE
     Route: 065
     Dates: start: 20240726, end: 20240726
  5. JELMYTO [Suspect]
     Active Substance: MITOMYCIN
     Dosage: UNK, (INSTILLATION),ANTEGRADE
     Route: 065
     Dates: start: 20240802, end: 20240802
  6. JELMYTO [Suspect]
     Active Substance: MITOMYCIN
     Dosage: UNK, (INSTILLATION),ANTEGRADE
     Route: 065
     Dates: start: 20240809, end: 20240809

REACTIONS (1)
  - Therapy partial responder [Unknown]

NARRATIVE: CASE EVENT DATE: 20241001
